FAERS Safety Report 13512091 (Version 1)
Quarter: 2017Q2

REPORT INFORMATION
  Report Type: Spontaneous
  Country: US (occurrence: US)
  Receive Date: 20170504
  Receipt Date: 20170504
  Transmission Date: 20170830
  Serious: No
  Sender: FDA-Public Use
  Company Number: US-TEVA-681328USA

PATIENT
  Sex: Female

DRUGS (14)
  1. MULTIVITAMIN [Concomitant]
     Active Substance: VITAMINS
  2. NOVOLOG [Concomitant]
     Active Substance: INSULIN ASPART
  3. NICOTINIC ACID [Suspect]
     Active Substance: NIACIN
     Indication: PRODUCT USED FOR UNKNOWN INDICATION
     Route: 065
  4. PERCOCET [Concomitant]
     Active Substance: ACETAMINOPHEN\OXYCODONE HYDROCHLORIDE
  5. GLIPIZIDE. [Concomitant]
     Active Substance: GLIPIZIDE
  6. NITRIC ACID [Concomitant]
     Active Substance: NITRIC ACID
  7. EPIPEN [Concomitant]
     Active Substance: EPINEPHRINE
  8. LYRICA [Concomitant]
     Active Substance: PREGABALIN
  9. LEVEMIR [Concomitant]
     Active Substance: INSULIN DETEMIR
  10. ATENOLOL. [Concomitant]
     Active Substance: ATENOLOL
  11. METFORMIN [Concomitant]
     Active Substance: METFORMIN HYDROCHLORIDE
  12. AMLODIPINE BESILATE [Concomitant]
     Active Substance: AMLODIPINE BESYLATE
  13. LISINOPRIL. [Concomitant]
     Active Substance: LISINOPRIL
  14. CRESTOR [Concomitant]
     Active Substance: ROSUVASTATIN CALCIUM

REACTIONS (1)
  - Drug hypersensitivity [Unknown]
